FAERS Safety Report 20966702 (Version 1)
Quarter: 2022Q2

REPORT INFORMATION
  Report Type: Spontaneous
  Country: US (occurrence: None)
  Receive Date: 20220615
  Receipt Date: 20220615
  Transmission Date: 20220721
  Serious: Yes (Other)
  Sender: FDA-Public Use
  Company Number: None

PATIENT
  Age: 67 Year
  Sex: Male
  Weight: 93.15 kg

DRUGS (6)
  1. PAXLOVID [Suspect]
     Active Substance: NIRMATRELVIR\RITONAVIR
     Indication: COVID-19 treatment
     Dates: start: 20220531, end: 20220605
  2. METFORMIN [Concomitant]
     Active Substance: METFORMIN HYDROCHLORIDE
  3. LEVOTHYROXINE [Concomitant]
     Active Substance: LEVOTHYROXINE
  4. CIALIS [Concomitant]
     Active Substance: TADALAFIL
  5. INDOMETHACIN [Concomitant]
     Active Substance: INDOMETHACIN
  6. BENZONATATE [Concomitant]
     Active Substance: BENZONATATE

REACTIONS (2)
  - COVID-19 [None]
  - Rebound effect [None]
